FAERS Safety Report 19955702 (Version 3)
Quarter: 2023Q1

REPORT INFORMATION
  Report Type: Other
  Country: CA (occurrence: CA)
  Receive Date: 20211013
  Receipt Date: 20230222
  Transmission Date: 20230418
  Serious: Yes (Hospitalization, Other)
  Sender: FDA-Public Use
  Company Number: CA-CELLTRION INC.-2021CA013862

PATIENT

DRUGS (12)
  1. RITUXIMAB [Suspect]
     Active Substance: RITUXIMAB
     Indication: Pemphigus
     Dosage: 1000.0 MILLIGRAM, 1 EVERY 2 WEEKS
     Route: 041
  2. ATROVENT [Concomitant]
     Active Substance: IPRATROPIUM BROMIDE
     Dosage: 0.06 PERCENT, 2 EVERY 1 DAYS
     Route: 045
  3. BENADRYL [Concomitant]
     Active Substance: DIPHENHYDRAMINE HYDROCHLORIDE
     Indication: Premedication
     Dosage: 50.0 MILLIGRAM
     Route: 048
  4. DEXAMETHASONE [Concomitant]
     Active Substance: DEXAMETHASONE
     Dosage: 5.0 ML, 3 EVERY 1 DAYS
     Route: 048
  5. HYDERM [Concomitant]
     Dosage: 1.0 PERCENT, 2 EVERY 1 DAYS
     Route: 061
  6. LYDERM [Concomitant]
     Dosage: 0.05 PERCENT, 2 EVERY 1 DAYS
     Route: 061
  7. METHYLPREDNISOLONE SODIUM SUCCINATE [Concomitant]
     Active Substance: METHYLPREDNISOLONE SODIUM SUCCINATE
     Indication: Premedication
     Dosage: 100.0 MILLIGRAM
     Route: 042
  8. MUPIROCIN [Concomitant]
     Active Substance: MUPIROCIN
     Dosage: 2.0 PERCENT, 3 EVERY 1 DAYS
     Route: 061
  9. NYSTATIN [Concomitant]
     Active Substance: NYSTATIN
     Dosage: 5.0 ML, 3 EVERY 1 DAYS
     Route: 048
  10. RIFADIN [Concomitant]
     Active Substance: RIFAMPIN
     Dosage: 600.0 MILLIGRAM, 1 EVERY 1 DAYS
     Route: 048
  11. TYLENOL [Concomitant]
     Active Substance: ACETAMINOPHEN
     Indication: Premedication
     Dosage: 650.0 MILLIGRAM
     Route: 048
  12. DICLOFENAC [Concomitant]
     Active Substance: DICLOFENAC
     Dosage: 2.0 GRAM, 2 EVERY 1 DAYS
     Route: 061

REACTIONS (10)
  - Blood pressure diastolic abnormal [Unknown]
  - Blood pressure diastolic decreased [Unknown]
  - Blood pressure fluctuation [Unknown]
  - Heart rate decreased [Unknown]
  - Insomnia [Unknown]
  - Oxygen saturation decreased [Unknown]
  - COVID-19 [Unknown]
  - Headache [Unknown]
  - Infusion related reaction [Unknown]
  - Throat irritation [Unknown]
